FAERS Safety Report 25540937 (Version 2)
Quarter: 2025Q4

REPORT INFORMATION
  Report Type: Spontaneous
  Country: US (occurrence: US)
  Receive Date: 20250710
  Receipt Date: 20251120
  Transmission Date: 20260118
  Serious: Yes (Hospitalization)
  Sender: BRISTOL-MYERS SQUIBB COMPANY
  Company Number: US-BRISTOL-MYERS SQUIBB COMPANY-2025-097012

PATIENT
  Age: 43 Year
  Sex: Female

DRUGS (1)
  1. OZANIMOD [Suspect]
     Active Substance: OZANIMOD
     Indication: Multiple sclerosis
     Route: 048

REACTIONS (3)
  - Multiple sclerosis relapse [Unknown]
  - Muscle spasms [Unknown]
  - Mental disorder [Unknown]

NARRATIVE: CASE EVENT DATE: 20250707
